FAERS Safety Report 9199107 (Version 1)
Quarter: 2013Q1

REPORT INFORMATION
  Report Type: Not Available
  Country: GB (occurrence: GB)
  Receive Date: 20130329
  Receipt Date: 20130329
  Transmission Date: 20140127
  Serious: Yes (Other)
  Sender: FDA-Public Use
  Company Number: GB-ASTELLAS-2013EU002789

PATIENT
  Age: 66 Year
  Sex: Male
  Weight: 98 kg

DRUGS (3)
  1. SOLIFENACIN [Suspect]
     Indication: URINARY TRACT INFECTION
     Dosage: UNK
     Route: 048
     Dates: start: 20120810, end: 20120910
  2. ASPIRIN [Concomitant]
     Indication: ANGINA PECTORIS
     Dosage: 75 MG, UNKNOWN/D
     Route: 048
     Dates: start: 201010
  3. SLOZEM [Concomitant]
     Indication: ANGINA PECTORIS
     Dosage: 180 MG, UNKNOWN/D
     Route: 048
     Dates: start: 201112

REACTIONS (2)
  - Vision blurred [Not Recovered/Not Resolved]
  - Extraocular muscle paresis [Not Recovered/Not Resolved]
